FAERS Safety Report 19412021 (Version 1)
Quarter: 2021Q2

REPORT INFORMATION
  Report Type: Spontaneous
  Country: US (occurrence: US)
  Receive Date: 20210614
  Receipt Date: 20210614
  Transmission Date: 20210717
  Serious: No
  Sender: FDA-Public Use
  Company Number: US-COVIS PHARMA GMBH-2020COV00585

PATIENT
  Sex: Female

DRUGS (3)
  1. OMEPRAZOLE MAGNESIUM. [Suspect]
     Active Substance: OMEPRAZOLE MAGNESIUM
     Dosage: UNK
     Route: 048
  2. LYNPARZA [Suspect]
     Active Substance: OLAPARIB
     Dosage: 150 MG, 2X/DAY
     Route: 048
     Dates: start: 202005
  3. LYNPARZA [Suspect]
     Active Substance: OLAPARIB
     Dosage: 300 MG, 2X/DAY
     Route: 048
     Dates: start: 20200101

REACTIONS (2)
  - Dyspepsia [Recovered/Resolved]
  - Immunodeficiency [Unknown]
